FAERS Safety Report 6232125-2 (Version None)
Quarter: 2009Q2

REPORT INFORMATION
  Report Type: 
  Country: None (occurrence: None)
  Receive Date: 20090617
  Receipt Date: 20080129
  Transmission Date: 20091009
  Serious: Yes (Death, Life-Threatening, Hospitalization)
  Sender: FDA-Public Use
  Company Number: KR-ROCHE-541449

PATIENT
  Sex: Female
  Weight: 81 kg

DRUGS (3)
  1. CAPECITABINE [Suspect]
     Indication: GASTRIC CANCER
     Dosage: GIVEN ON DAYS ONE TO FOURTEEN EVERY THREE WEEKS.
     Route: 048
     Dates: start: 20071226, end: 20080109
  2. BLINDED BEVACIZUMAB [Suspect]
     Indication: GASTRIC CANCER
     Dosage: AS OF CYCLE 1 GIVEN ON DAY ONE EVERY THREE WEEKS. DOSAGE FORM REPORTED AS INFUSION.
     Route: 042
     Dates: start: 20071226, end: 20071226
  3. CISPLATIN [Suspect]
     Indication: GASTRIC CANCER
     Dosage: DOSAGE FORM REPORTED AS INFUSION. GIVEN ON DAY ONE EVERY THREE WEEKS FOR A TOTAL OF SIX CYCLES.
     Route: 042
     Dates: start: 20071226, end: 20071226

REACTIONS (2)
  - DIARRHOEA [None]
  - NEUTROPENIC INFECTION [None]
